FAERS Safety Report 7693497-5 (Version None)
Quarter: 2011Q3

REPORT INFORMATION
  Report Type: 
  Country: None (occurrence: None)
  Receive Date: 20110819
  Receipt Date: 20110819
  Transmission Date: 20111222
  Serious: Yes (Life-Threatening, Hospitalization)
  Sender: FDA-Public Use
  Company Number: None

PATIENT
  Age: 84 Year
  Sex: Female
  Weight: 61 kg

DRUGS (8)
  1. ANASTROZOLE [Concomitant]
     Route: 048
  2. HYDROCHLOROTHIAZIDE [Concomitant]
  3. LOSARTAN [Concomitant]
  4. CITALOPRAM HYDROBROMIDE [Concomitant]
  5. DABIGATRAN ETEXILATE [Suspect]
     Indication: ATRIAL FIBRILLATION
     Dosage: 150MG
     Route: 048
     Dates: start: 20110516, end: 20110617
  6. VICODIN [Concomitant]
     Indication: ATRIAL FIBRILLATION
  7. POTASSIUM CHLORIDE [Concomitant]
  8. METOPROLOL SUCCINATE EXTENDED RELEASE [Concomitant]

REACTIONS (5)
  - HEPATITIS ACUTE [None]
  - ASTHENIA [None]
  - WEIGHT DECREASED [None]
  - FALL [None]
  - DECREASED APPETITE [None]
